FAERS Safety Report 12601306 (Version 2)
Quarter: 2016Q3

REPORT INFORMATION
  Report Type: Spontaneous
  Country: DE (occurrence: DE)
  Receive Date: 20160728
  Receipt Date: 20160912
  Transmission Date: 20161109
  Serious: Yes (Life-Threatening)
  Sender: FDA-Public Use
  Company Number: DE-ROCHE-1802930

PATIENT
  Age: 58 Year
  Sex: Male

DRUGS (6)
  1. PERJETA [Suspect]
     Active Substance: PERTUZUMAB
     Indication: BREAST CANCER FEMALE
     Dosage: DURATION: 30 MIN
     Route: 042
     Dates: start: 20160530
  2. CLEMASTINE [Concomitant]
     Active Substance: CLEMASTINE
     Route: 042
     Dates: start: 20160530
  3. DEXAMETHASONE. [Concomitant]
     Active Substance: DEXAMETHASONE
     Route: 042
     Dates: start: 20160530
  4. DOCETAXEL. [Concomitant]
     Active Substance: DOCETAXEL
  5. RANITIDIN [Concomitant]
     Active Substance: RANITIDINE HYDROCHLORIDE
     Route: 042
     Dates: start: 20160530
  6. HERCEPTIN [Suspect]
     Active Substance: TRASTUZUMAB
     Indication: BREAST CANCER FEMALE
     Dosage: DURATION: 30 MIN
     Route: 042
     Dates: start: 20160530

REACTIONS (2)
  - Pulmonary oedema [Recovered/Resolved]
  - Hypertensive crisis [Recovered/Resolved]

NARRATIVE: CASE EVENT DATE: 20160530
